FAERS Safety Report 14149505 (Version 1)
Quarter: 2017Q4

REPORT INFORMATION
  Report Type: Spontaneous
  Country: US (occurrence: US)
  Receive Date: 20171101
  Receipt Date: 20171101
  Transmission Date: 20180321
  Serious: Yes (Life-Threatening, Hospitalization, Other)
  Sender: FDA-Public Use
  Company Number: None

PATIENT
  Age: 66 Year
  Sex: Male
  Weight: 113 kg

DRUGS (2)
  1. OLARATUMAB [Suspect]
     Active Substance: OLARATUMAB
     Indication: SOFT TISSUE SARCOMA
     Dosage: ?          OTHER FREQUENCY:ONCE;?
     Route: 042
  2. SODIUM CHLORIDE. [Concomitant]
     Active Substance: SODIUM CHLORIDE

REACTIONS (2)
  - Dyspnoea [None]
  - Infusion related reaction [None]

NARRATIVE: CASE EVENT DATE: 20171027
